FAERS Safety Report 19386141 (Version 2)
Quarter: 2021Q2

REPORT INFORMATION
  Report Type: Spontaneous
  Country: CZ (occurrence: CZ)
  Receive Date: 20210607
  Receipt Date: 20210611
  Transmission Date: 20210717
  Serious: Yes (Other)
  Sender: FDA-Public Use
  Company Number: CZ-ALXN-A202105569

PATIENT
  Sex: Female

DRUGS (11)
  1. FRAXIPARIN [Suspect]
     Active Substance: NADROPARIN CALCIUM
     Dosage: 0.4 MG, QD
     Route: 065
  2. FRAXIPARIN [Suspect]
     Active Substance: NADROPARIN CALCIUM
     Dosage: 2X 0.6 ML
     Route: 065
  3. SOLIRIS [Suspect]
     Active Substance: ECULIZUMAB
     Dosage: 900 MG, Q2W
     Route: 065
  4. FRAXIPARIN [Suspect]
     Active Substance: NADROPARIN CALCIUM
     Dosage: 0.8 MG, QD
     Route: 065
  5. CLEXANE [Concomitant]
     Active Substance: ENOXAPARIN SODIUM
     Dosage: 0.4 ML, QD
     Route: 065
     Dates: start: 202010
  6. SOLIRIS [Suspect]
     Active Substance: ECULIZUMAB
     Dosage: 900 MG, UNK
     Route: 065
     Dates: start: 20171205
  7. FRAXIPARIN [Suspect]
     Active Substance: NADROPARIN CALCIUM
     Indication: SPLENIC VEIN THROMBOSIS
     Dosage: 0.6 MG, QD
     Route: 065
  8. CLEXANE [Concomitant]
     Active Substance: ENOXAPARIN SODIUM
     Indication: PRODUCT USED FOR UNKNOWN INDICATION
     Dosage: 0.6 ML, QD
     Route: 065
     Dates: start: 202009
  9. SOLIRIS [Suspect]
     Active Substance: ECULIZUMAB
     Dosage: 900 MG, Q2W
     Route: 065
     Dates: start: 2015
  10. IRON [Concomitant]
     Active Substance: IRON
     Indication: BREAST FEEDING
     Dosage: UNK
     Route: 065
  11. SOLIRIS [Suspect]
     Active Substance: ECULIZUMAB
     Indication: PAROXYSMAL NOCTURNAL HAEMOGLOBINURIA
     Dosage: 600 MG, QW
     Route: 065
     Dates: start: 201507

REACTIONS (8)
  - Serum ferritin decreased [Unknown]
  - Exposure during pregnancy [Unknown]
  - Fibrin D dimer increased [Unknown]
  - Antibody test abnormal [Unknown]
  - Dyspepsia [Unknown]
  - Caesarean section [Unknown]
  - Premature delivery [Recovered/Resolved]
  - Upper respiratory tract infection [Unknown]

NARRATIVE: CASE EVENT DATE: 20171207
